FAERS Safety Report 6442123-1 (Version None)
Quarter: 2009Q4

REPORT INFORMATION
  Report Type: 
  Country: None (occurrence: None)
  Receive Date: 20091116
  Receipt Date: 20091104
  Transmission Date: 20100525
  Serious: Yes (Hospitalization)
  Sender: FDA-Public Use
  Company Number: PHNU2007DE01118

PATIENT
  Sex: Female

DRUGS (1)
  1. VOLTAREN [Suspect]
     Dosage: 100 MG PER DAY
     Route: 048
     Dates: start: 19990101

REACTIONS (4)
  - IRON DEFICIENCY ANAEMIA [None]
  - MYELODYSPLASTIC SYNDROME [None]
  - OSTEOPOROSIS [None]
  - REFRACTORY ANAEMIA WITH RINGED SIDEROBLASTS [None]
